FAERS Safety Report 25457300 (Version 1)
Quarter: 2025Q2

REPORT INFORMATION
  Report Type: Spontaneous
  Country: BR (occurrence: BR)
  Receive Date: 20250619
  Receipt Date: 20250619
  Transmission Date: 20250716
  Serious: Yes (Other)
  Sender: PFIZER
  Company Number: BR-TAKEDA-2025TUS054884

PATIENT
  Age: 49 Year
  Sex: Male

DRUGS (3)
  1. PANTOPRAZOLE [Suspect]
     Active Substance: PANTOPRAZOLE
     Indication: Gastrooesophageal reflux disease
     Route: 065
  2. PANTOPRAZOLE [Suspect]
     Active Substance: PANTOPRAZOLE
     Indication: Dyspepsia
  3. VONOPRAZAN FUMARATE [Suspect]
     Active Substance: VONOPRAZAN FUMARATE
     Route: 065

REACTIONS (4)
  - Drug use disorder [Unknown]
  - Muscular weakness [Unknown]
  - Joint swelling [Unknown]
  - Arthralgia [Unknown]
